FAERS Safety Report 14675347 (Version 1)
Quarter: 2018Q1

REPORT INFORMATION
  Report Type: Spontaneous
  Country: US (occurrence: US)
  Receive Date: 20180323
  Receipt Date: 20180323
  Transmission Date: 20180509
  Serious: Yes (Other)
  Sender: FDA-Public Use
  Company Number: US-NEPHRON STERILE COMPOUNDING CENTER-2044422

PATIENT
  Age: 70 Year
  Sex: Male
  Weight: 77.73 kg

DRUGS (14)
  1. DIPRIVAN [Concomitant]
     Active Substance: PROPOFOL
  2. EPHEDRINE. [Concomitant]
     Active Substance: EPHEDRINE
  3. NEO-SYNEPHRINE [Concomitant]
     Active Substance: PHENYLEPHRINE HYDROCHLORIDE
  4. ZOFRAN [Concomitant]
     Active Substance: ONDANSETRON HYDROCHLORIDE
  5. FENTANYL. [Concomitant]
     Active Substance: FENTANYL
  6. ATROPINE. [Concomitant]
     Active Substance: ATROPINE
  7. NEOSTIGMINE METHYLSULFATE. [Concomitant]
     Active Substance: NEOSTIGMINE METHYLSULFATE
  8. ROCURONIUM BROMIDE INJECTION 50MG/5ML (10MG/ML) [Suspect]
     Active Substance: ROCURONIUM BROMIDE
     Indication: SURGERY
     Route: 040
     Dates: start: 20180315, end: 20180315
  9. LIDOCAINE. [Concomitant]
     Active Substance: LIDOCAINE
  10. KEFZOL [Concomitant]
     Active Substance: CEFAZOLIN SODIUM
  11. ATRACURIUM BESYLATE. [Concomitant]
     Active Substance: ATRACURIUM BESYLATE
  12. ZEMURON [Concomitant]
     Active Substance: ROCURONIUM BROMIDE
  13. ROBINUL [Concomitant]
     Active Substance: GLYCOPYRROLATE
  14. DECADRON [Concomitant]
     Active Substance: DEXAMETHASONE

REACTIONS (1)
  - Drug ineffective [Recovered/Resolved]

NARRATIVE: CASE EVENT DATE: 20180315
